FAERS Safety Report 10699316 (Version 1)
Quarter: 2015Q1

REPORT INFORMATION
  Report Type: Spontaneous
  Country: US (occurrence: US)
  Receive Date: 20150109
  Receipt Date: 20150109
  Transmission Date: 20150721
  Serious: Yes (Death, Hospitalization)
  Sender: FDA-Public Use
  Company Number: PHHY2015US000638

PATIENT
  Age: 85 Year
  Sex: Male

DRUGS (2)
  1. WARFARIN [Suspect]
     Active Substance: WARFARIN
     Indication: PRODUCT USED FOR UNKNOWN INDICATION
     Route: 065
  2. HEPARIN [Suspect]
     Active Substance: HEPARIN SODIUM
     Indication: PRODUCT USED FOR UNKNOWN INDICATION
     Route: 065

REACTIONS (8)
  - Cardiac tamponade [Unknown]
  - Aneurysm ruptured [Fatal]
  - Chest pain [Fatal]
  - Hypotension [Unknown]
  - Hypertension [Fatal]
  - Cardiac arrest [Fatal]
  - Chest discomfort [Unknown]
  - Cardiac failure [Fatal]
